FAERS Safety Report 8935542 (Version 1)
Quarter: 2012Q4

REPORT INFORMATION
  Report Type: 
  Country: US (occurrence: US)
  Receive Date: 20121130
  Receipt Date: 20121130
  Transmission Date: 20130627
  Serious: Yes (Other)
  Sender: FDA-Public Use
  Company Number: US-BAYER-2012-124036

PATIENT
  Age: 19 Year
  Sex: Male
  Weight: 104.31 kg

DRUGS (2)
  1. NEO-SYNEPHRINE [Suspect]
     Indication: SINUS CONGESTION
     Dosage: 3 dose, QD
     Route: 045
     Dates: start: 20121120, end: 20121121
  2. MULTI VITAMIN [Concomitant]

REACTIONS (2)
  - Anosmia [Not Recovered/Not Resolved]
  - Ageusia [Not Recovered/Not Resolved]
